FAERS Safety Report 10254419 (Version 1)
Quarter: 2014Q2

REPORT INFORMATION
  Report Type: Spontaneous
  Country: US (occurrence: US)
  Receive Date: 20140624
  Receipt Date: 20140624
  Transmission Date: 20141212
  Serious: No
  Sender: FDA-Public Use
  Company Number: US-BIOGENIDEC-2014BI058557

PATIENT
  Age: 62 Year
  Sex: Female

DRUGS (1)
  1. TYSABRI [Suspect]
     Indication: MULTIPLE SCLEROSIS
     Route: 042
     Dates: start: 20140317

REACTIONS (4)
  - Syncope [Recovered/Resolved]
  - Contusion [Recovered/Resolved]
  - Cardiovascular disorder [Recovered/Resolved]
  - Peroneal nerve palsy [Recovered/Resolved]
